FAERS Safety Report 21793405 (Version 2)
Quarter: 2023Q1

REPORT INFORMATION
  Report Type: Report from Study
  Country: BE (occurrence: BE)
  Receive Date: 20221229
  Receipt Date: 20230210
  Transmission Date: 20230417
  Serious: Yes (Hospitalization)
  Sender: FDA-Public Use
  Company Number: BE-ABBVIE-4251841

PATIENT
  Age: 77 Year
  Sex: Female
  Weight: 55 kg

DRUGS (32)
  1. CARBIDOPA\LEVODOPA [Suspect]
     Active Substance: CARBIDOPA\LEVODOPA
     Indication: Parkinson^s disease
     Route: 050
     Dates: start: 20210315
  2. CARBIDOPA\LEVODOPA [Suspect]
     Active Substance: CARBIDOPA\LEVODOPA
     Dosage: MD 11.0 ML; CD 4.1 ML/HR DURING 16 HOURS; ED 1.5 ML
     Route: 050
     Dates: start: 20220628, end: 20220926
  3. CARBIDOPA\LEVODOPA [Suspect]
     Active Substance: CARBIDOPA\LEVODOPA
     Dosage: MD 11.0 ML; CD 4.1 ML/HR DURING 16 HOURS; ED 2.5 ML
     Route: 050
     Dates: start: 20220926
  4. PRAMIPEXOLE [Concomitant]
     Active Substance: PRAMIPEXOLE
     Indication: Parkinson^s disease
     Dosage: 2.1 MG, 1 TABLET
     Route: 048
  5. PRAMIPEXOLE [Concomitant]
     Active Substance: PRAMIPEXOLE
     Indication: Parkinson^s disease
     Dosage: 2.1 MG, 1 TABLET
     Route: 048
  6. LEVOMEPROMAZINE [Concomitant]
     Active Substance: LEVOMEPROMAZINE
     Indication: Relaxation therapy
     Dosage: 100 MG, 1/4 TABLET
     Route: 048
  7. LEVOMEPROMAZINE [Concomitant]
     Active Substance: LEVOMEPROMAZINE
     Indication: Relaxation therapy
     Dosage: 100 MG, 1/4 TABLET
     Route: 048
  8. FERROUS GLUCONATE [Concomitant]
     Active Substance: FERROUS GLUCONATE
     Indication: Blood iron
     Route: 048
  9. GLUCOPHAGE [Concomitant]
     Active Substance: METFORMIN HYDROCHLORIDE
     Indication: Diabetes mellitus
     Dosage: 850 MG, 1 TABLET
     Route: 048
  10. GLUCOPHAGE [Concomitant]
     Active Substance: METFORMIN HYDROCHLORIDE
     Indication: Diabetes mellitus
     Dosage: 850 MG, 1 TABLET
     Route: 048
  11. Lorametazepam [Concomitant]
     Indication: Insomnia
     Dosage: 1 MG, 1 TABLET
     Route: 048
  12. Lorametazepam [Concomitant]
     Indication: Insomnia
     Dosage: 1 MG, 1 TABLET
     Route: 048
  13. CLOZAPINE [Concomitant]
     Active Substance: CLOZAPINE
     Indication: Antipsychotic therapy
     Dosage: 25 MG, 1/2 TABLET
     Route: 048
  14. CLOZAPINE [Concomitant]
     Active Substance: CLOZAPINE
     Indication: Antipsychotic therapy
     Dosage: 25 MG, 1/2 TABLET
     Route: 048
  15. SIMVASTATIN [Concomitant]
     Active Substance: SIMVASTATIN
     Indication: Blood cholesterol
     Dosage: 20 MG, 1 TABLET
     Route: 048
  16. APOMORPHINE HYDROCHLORIDE [Concomitant]
     Active Substance: APOMORPHINE HYDROCHLORIDE
     Indication: Parkinson^s disease
     Dosage: 10 MG/ML, 3 ML
     Route: 058
  17. APOMORPHINE HYDROCHLORIDE [Concomitant]
     Active Substance: APOMORPHINE HYDROCHLORIDE
     Indication: Parkinson^s disease
     Dosage: 10 MG/ML, 3 ML
     Route: 058
  18. MOVICOL [Concomitant]
     Active Substance: POLYETHYLENE GLYCOL 3350\POTASSIUM CHLORIDE\SODIUM BICARBONATE\SODIUM CHLORIDE
     Indication: Constipation prophylaxis
     Dosage: 13.8 MG
     Route: 048
  19. DOMPERIDONE EG [Concomitant]
     Indication: Nausea
     Route: 048
  20. XADAGO [Concomitant]
     Active Substance: SAFINAMIDE MESYLATE
     Indication: Parkinson^s disease
     Dosage: 100 MG, 1 TABLET
     Route: 048
  21. XADAGO [Concomitant]
     Active Substance: SAFINAMIDE MESYLATE
     Indication: Parkinson^s disease
     Dosage: 100 MG, 1 TABLET
     Route: 048
  22. CHOLECALCIFEROL [Concomitant]
     Active Substance: CHOLECALCIFEROL
     Indication: Vitamin D
     Dosage: 25000 UNITS/ML
     Route: 048
  23. JANUVIA [Concomitant]
     Active Substance: SITAGLIPTIN PHOSPHATE
     Indication: Diabetes mellitus
     Dosage: 1000 MG, 1 TABLET
     Route: 048
  24. JANUVIA [Concomitant]
     Active Substance: SITAGLIPTIN PHOSPHATE
     Indication: Diabetes mellitus
     Dosage: 1000 MG, 1 TABLET
     Route: 048
  25. VITAMIN B12 [Concomitant]
     Active Substance: CYANOCOBALAMIN
     Indication: Coordination abnormal
     Dosage: 1000 MCG/1 ML
     Route: 030
  26. STALEVO [Concomitant]
     Active Substance: CARBIDOPA\ENTACAPONE\LEVODOPA
     Indication: Parkinson^s disease
     Dosage: 200-50-200MG, 1 TABLET
     Route: 048
  27. STALEVO [Concomitant]
     Active Substance: CARBIDOPA\ENTACAPONE\LEVODOPA
     Indication: Parkinson^s disease
     Dosage: 200-50-200MG, 1 TABLET
     Route: 048
  28. STALEVO [Concomitant]
     Active Substance: CARBIDOPA\ENTACAPONE\LEVODOPA
     Indication: Parkinson^s disease
     Dosage: 100-25-200 MG, 1 TABLET
     Route: 048
  29. STALEVO [Concomitant]
     Active Substance: CARBIDOPA\ENTACAPONE\LEVODOPA
     Indication: Parkinson^s disease
     Dosage: 150-37,5-200MG, 1 TABLET
     Route: 048
  30. STALEVO [Concomitant]
     Active Substance: CARBIDOPA\ENTACAPONE\LEVODOPA
     Indication: Parkinson^s disease
     Dosage: 150-37,5-200MG, 1 TABLET
     Route: 048
  31. STALEVO [Concomitant]
     Active Substance: CARBIDOPA\ENTACAPONE\LEVODOPA
     Indication: Parkinson^s disease
     Dosage: 100-25-200 MG, 1 TABLET
     Route: 048
  32. LACTULOSE [Concomitant]
     Active Substance: LACTULOSE
     Indication: Constipation prophylaxis
     Route: 048

REACTIONS (2)
  - Patella fracture [Unknown]
  - Fall [Not Recovered/Not Resolved]

NARRATIVE: CASE EVENT DATE: 20221225
